FAERS Safety Report 10633947 (Version 2)
Quarter: 2014Q4

REPORT INFORMATION
  Report Type: Spontaneous
  Country: BR (occurrence: BR)
  Receive Date: 20141205
  Receipt Date: 20141222
  Transmission Date: 20150529
  Serious: Yes (Other)
  Sender: FDA-Public Use
  Company Number: BR-NOVOPROD-431020

PATIENT
  Sex: Male

DRUGS (2)
  1. HUMULIN NOS [Concomitant]
     Active Substance: INSULIN HUMAN
     Indication: DIABETES MELLITUS
     Dosage: ACCORDING TO DEXTROSE
     Route: 065
  2. NOVOLIN N [Suspect]
     Active Substance: INSULIN HUMAN
     Indication: DIABETES MELLITUS
     Dosage: 85 IU, QD (40U MORNING, 25U AFTER LUNCH AND 20U IN THE AFTERNOON)
     Route: 065

REACTIONS (1)
  - Diabetic retinopathy [Unknown]
